FAERS Safety Report 6788067-7 (Version None)
Quarter: 2010Q2

REPORT INFORMATION
  Report Type: 
  Country: None (occurrence: None)
  Receive Date: 20100623
  Receipt Date: 20080313
  Transmission Date: 20101027
  Serious: No
  Sender: FDA-Public Use
  Company Number: US-PFIZER INC-2007094821

PATIENT
  Sex: Male
  Weight: 161.8 kg

DRUGS (11)
  1. GENOTROPIN [Suspect]
     Indication: HYPOPITUITARISM
     Dates: start: 20020129
  2. DESMOPRESSIN ACETATE [Concomitant]
  3. LOVASTATIN [Concomitant]
  4. ALLOPURINOL [Concomitant]
  5. ACTOS [Concomitant]
  6. LEVOXYL [Concomitant]
  7. ANDROGEL [Concomitant]
  8. DEXAMETHASONE ACETATE [Concomitant]
  9. VALSARTAN [Concomitant]
  10. BUPROPION HYDROCHLORIDE [Concomitant]
  11. ALL OTHER THERAPEUTIC PRODUCTS [Concomitant]

REACTIONS (2)
  - DRUG INEFFECTIVE [None]
  - THYROXINE INCREASED [None]
